FAERS Safety Report 17661082 (Version 1)
Quarter: 2020Q2

REPORT INFORMATION
  Report Type: Spontaneous
  Country: US (occurrence: US)
  Receive Date: 20200412
  Receipt Date: 20200412
  Transmission Date: 20200713
  Serious: Yes (Other)
  Sender: FDA-Public Use
  Company Number: None

PATIENT
  Age: 30 Year
  Sex: Female

DRUGS (2)
  1. IRON WOMEN^S ONE A DAY [Concomitant]
  2. LESSINA [Suspect]
     Active Substance: ETHINYL ESTRADIOL\LEVONORGESTREL
     Indication: CONTRACEPTION
     Route: 048
     Dates: start: 20200318, end: 20200403

REACTIONS (4)
  - Asthenia [None]
  - Dizziness [None]
  - Thyroid hormones increased [None]
  - Menorrhagia [None]

NARRATIVE: CASE EVENT DATE: 20200325
